FAERS Safety Report 6318565-1 (Version None)
Quarter: 2009Q3

REPORT INFORMATION
  Report Type: 
  Country: None (occurrence: None)
  Receive Date: 20090821
  Receipt Date: 20090818
  Transmission Date: 20100115
  Serious: Yes (Death, Other)
  Sender: FDA-Public Use
  Company Number: PHHY2009DE34769

PATIENT
  Age: 16 Year
  Sex: Male

DRUGS (5)
  1. CYCLOSPORINE [Suspect]
     Indication: STEM CELL TRANSPLANT
  2. METHOTREXATE [Suspect]
     Indication: PROPHYLAXIS AGAINST GRAFT VERSUS HOST DISEASE
  3. BUSULPHAN [Concomitant]
     Indication: STEM CELL TRANSPLANT
     Dosage: 5 MG/KG
     Route: 048
  4. CYCLOPHOSPHAMIDE [Concomitant]
     Dosage: 60 MG/KG
  5. THIOTEPA [Concomitant]
     Dosage: 750 MG

REACTIONS (2)
  - BACTERIAL SEPSIS [None]
  - MUCOSAL INFLAMMATION [None]
